FAERS Safety Report 5314207-2 (Version None)
Quarter: 2007Q2

REPORT INFORMATION
  Report Type: 
  Country: None (occurrence: None)
  Receive Date: 20070426
  Receipt Date: 20070411
  Transmission Date: 20071010
  Serious: Yes (Other)
  Sender: FDA-Public Use
  Company Number: ES-GDP-0714803

PATIENT
  Age: 85 Year
  Sex: Female

DRUGS (2)
  1. METVIXIA [Suspect]
     Indication: ACTINIC KERATOSIS
     Dosage: 1 APP ONCE ; TP
     Route: 061
     Dates: start: 20070327, end: 20070327
  2. METVIXIA [Suspect]
     Indication: BASAL CELL CARCINOMA
     Dosage: 1 APP ONCE ; TP
     Route: 061
     Dates: start: 20070327, end: 20070327

REACTIONS (2)
  - CORNEAL DISORDER [None]
  - KERATITIS [None]
